FAERS Safety Report 6529267-0 (Version None)
Quarter: 2009Q4

REPORT INFORMATION
  Report Type: 
  Country: None (occurrence: None)
  Receive Date: 20091204
  Receipt Date: 20091225
  Transmission Date: 20100525
  Serious: Yes (Other)
  Sender: FDA-Public Use
  Company Number: 2009SP043256

PATIENT

DRUGS (1)
  1. MUSCULAX (VECURONIUM BROMIDE) (VECURONIUM BROMIDE) [Suspect]
     Indication: DRUG USE FOR UNKNOWN INDICATION
     Dosage: ; IV
     Route: 042

REACTIONS (1)
  - HYPERNATRAEMIA [None]
